FAERS Safety Report 6767978-2 (Version None)
Quarter: 2010Q2

REPORT INFORMATION
  Report Type: 
  Country: None (occurrence: None)
  Receive Date: 20100614
  Receipt Date: 20100607
  Transmission Date: 20101027
  Serious: Yes (Disabling)
  Sender: FDA-Public Use
  Company Number: A0855259A

PATIENT
  Age: 75 Year
  Sex: Female
  Weight: 41.8 kg

DRUGS (4)
  1. SEREVENT [Suspect]
     Indication: CHRONIC OBSTRUCTIVE PULMONARY DISEASE
     Route: 055
  2. ASMANEX TWISTHALER [Concomitant]
     Dosage: 2PUFF PER DAY
  3. SPIRIVA [Concomitant]
     Dosage: 2PUFF IN THE MORNING
  4. VENTOLIN [Concomitant]

REACTIONS (5)
  - ABASIA [None]
  - ASTHENIA [None]
  - MOBILITY DECREASED [None]
  - MYOPATHY [None]
  - NEUROPATHY PERIPHERAL [None]
